FAERS Safety Report 13826405 (Version 1)
Quarter: 2017Q3

REPORT INFORMATION
  Report Type: Report from Study
  Country: KR (occurrence: KR)
  Receive Date: 20170802
  Receipt Date: 20170802
  Transmission Date: 20171127
  Serious: Yes (Hospitalization, Other)
  Sender: FDA-Public Use
  Company Number: KR-TAKEDA-2017TUS016180

PATIENT
  Age: 81 Year
  Sex: Male
  Weight: 58 kg

DRUGS (13)
  1. ASPIRIN                            /00002701/ [Concomitant]
     Active Substance: ASPIRIN
     Indication: CEREBRAL INFARCTION
     Dosage: 100 MG, UNK
     Route: 048
     Dates: start: 20160901, end: 20170228
  2. QUTIAPINE [Concomitant]
     Indication: MAJOR DEPRESSION
     Dosage: 25 MG, UNK
     Route: 048
     Dates: start: 20160804, end: 20170228
  3. ESCITALOPRAM [Concomitant]
     Active Substance: ESCITALOPRAM OXALATE
     Dosage: 5 MG, UNK
     Route: 048
     Dates: start: 20160825, end: 20170109
  4. BISOPROLOL [Concomitant]
     Active Substance: BISOPROLOL
     Indication: CEREBRAL INFARCTION
     Dosage: 2.5 MG, UNK
     Route: 048
     Dates: start: 20160901, end: 20170228
  5. RISPERIDONE. [Concomitant]
     Active Substance: RISPERIDONE
     Indication: MAJOR DEPRESSION
     Dosage: 0.5 MG, UNK
     Route: 048
     Dates: start: 20160901, end: 20170228
  6. CLOPIDOGREL HYDROGEN SULFATE [Concomitant]
     Active Substance: CLOPIDOGREL BISULFATE
     Indication: CEREBRAL INFARCTION
     Dosage: 79.875 MG, UNK
     Route: 048
     Dates: start: 20160901, end: 20170228
  7. BRINTELLIX [Suspect]
     Active Substance: VORTIOXETINE HYDROBROMIDE
     Indication: MAJOR DEPRESSION
     Dosage: 5 MG, QD
     Route: 048
     Dates: start: 20150825, end: 20170108
  8. DL-METHYLEPHEDRINE HCL [Concomitant]
     Indication: ASTHMA
     Dosage: 1.31 MG, UNK
     Route: 048
     Dates: start: 20160816, end: 20160915
  9. ATORVASTATIN CALCIUM. [Concomitant]
     Active Substance: ATORVASTATIN CALCIUM
     Indication: CEREBRAL INFARCTION
     Dosage: 20 MG, UNK
     Route: 048
     Dates: start: 20160901, end: 20170228
  10. CHOLINE ALFOSCERATE [Concomitant]
     Active Substance: CHOLINE ALFOSCERATE
     Indication: CEREBRAL INFARCTION
     Dosage: 400 MG, UNK
     Route: 048
     Dates: start: 20160901, end: 20170228
  11. BRINTELLIX [Suspect]
     Active Substance: VORTIOXETINE HYDROBROMIDE
     Dosage: 10 MG, QD
     Route: 048
     Dates: start: 20170109, end: 20170228
  12. LORAZEPAM. [Concomitant]
     Active Substance: LORAZEPAM
     Indication: MAJOR DEPRESSION
     Dosage: 0.5 MG, UNK
     Route: 048
     Dates: start: 20160804, end: 20161009
  13. ESCITALOPRAM [Concomitant]
     Active Substance: ESCITALOPRAM OXALATE
     Indication: MAJOR DEPRESSION
     Dosage: 10 MG, UNK
     Route: 048
     Dates: start: 20160804, end: 20160824

REACTIONS (1)
  - Post stroke seizure [Recovered/Resolved]

NARRATIVE: CASE EVENT DATE: 20160903
